FAERS Safety Report 15709029 (Version 1)
Quarter: 2018Q4

REPORT INFORMATION
  Report Type: Spontaneous
  Country: US (occurrence: US)
  Receive Date: 20181211
  Receipt Date: 20181211
  Transmission Date: 20190205
  Serious: No
  Sender: FDA-Public Use
  Company Number: US-BIOGEN-2013BI064046

PATIENT
  Age: 53 Year
  Sex: Female

DRUGS (2)
  1. AVONEX [Suspect]
     Active Substance: INTERFERON BETA-1A
     Indication: MULTIPLE SCLEROSIS
     Route: 030
  2. AVONEX [Suspect]
     Active Substance: INTERFERON BETA-1A
     Route: 030
     Dates: start: 20110924, end: 20170501

REACTIONS (8)
  - Fatigue [Recovered/Resolved]
  - Liver function test increased [Recovered/Resolved with Sequelae]
  - Stress [Recovered/Resolved]
  - Multiple sclerosis [Recovered/Resolved]
  - Chills [Recovered/Resolved]
  - Nephrolithiasis [Recovered/Resolved]
  - Feeling hot [Recovered/Resolved]
  - Malaise [Recovered/Resolved]

NARRATIVE: CASE EVENT DATE: 201304
